FAERS Safety Report 22377589 (Version 1)
Quarter: 2023Q2

REPORT INFORMATION
  Report Type: Spontaneous
  Country: US (occurrence: US)
  Receive Date: 20230529
  Receipt Date: 20230529
  Transmission Date: 20230721
  Serious: No
  Sender: FDA-Public Use
  Company Number: ALC2023US001410

PATIENT
  Age: 62 Year
  Sex: Female

DRUGS (2)
  1. SIMBRINZA [Suspect]
     Active Substance: BRIMONIDINE TARTRATE\BRINZOLAMIDE
     Indication: Product used for unknown indication
     Dosage: ONE DROP IN EACH EYE ONCE A DAY
     Route: 047
     Dates: end: 20230212
  2. SIMBRINZA [Suspect]
     Active Substance: BRIMONIDINE TARTRATE\BRINZOLAMIDE
     Dosage: ONE DROP IN EACH EYE TWICE A DAY
     Route: 047
     Dates: end: 20230212

REACTIONS (2)
  - Product packaging quantity issue [Unknown]
  - Ocular hyperaemia [Unknown]

NARRATIVE: CASE EVENT DATE: 20230212
